FAERS Safety Report 12199184 (Version 2)
Quarter: 2016Q2

REPORT INFORMATION
  Report Type: Spontaneous
  Country: US (occurrence: US)
  Receive Date: 20160322
  Receipt Date: 20160408
  Transmission Date: 20160815
  Serious: Yes (Disabling)
  Sender: FDA-Public Use
  Company Number: US-SHIRE-US201603331

PATIENT
  Age: 5 Year
  Sex: Male
  Weight: 23.2 kg

DRUGS (2)
  1. VYVANSE [Suspect]
     Active Substance: LISDEXAMFETAMINE DIMESYLATE
     Indication: ATTENTION DEFICIT/HYPERACTIVITY DISORDER
     Dosage: 20 MG, 1X/DAY:QD
     Route: 048
     Dates: start: 20150630, end: 20160317
  2. VYVANSE [Suspect]
     Active Substance: LISDEXAMFETAMINE DIMESYLATE
     Dosage: 30 UNK, UNK
     Route: 048
     Dates: start: 20160317

REACTIONS (7)
  - Disturbance in attention [Not Recovered/Not Resolved]
  - Drug ineffective [Not Recovered/Not Resolved]
  - Aggression [Recovering/Resolving]
  - Product quality issue [Unknown]
  - Drug administered to patient of inappropriate age [Recovered/Resolved]
  - Psychomotor hyperactivity [Recovering/Resolving]
  - Disturbance in social behaviour [Not Recovered/Not Resolved]

NARRATIVE: CASE EVENT DATE: 20150630
